FAERS Safety Report 15983778 (Version 12)
Quarter: 2020Q2

REPORT INFORMATION
  Report Type: Spontaneous
  Country: CA (occurrence: CA)
  Receive Date: 20190220
  Receipt Date: 20200622
  Transmission Date: 20200713
  Serious: Yes (Other)
  Sender: FDA-Public Use
  Company Number: CA-TEVA-2019-CA-1014687

PATIENT
  Age: 42 Year
  Sex: Female
  Weight: 81 kg

DRUGS (43)
  1. OXYCODONE TEREPHTHALATE [Suspect]
     Active Substance: OXYCODONE TEREPHTHALATE
     Indication: PRODUCT USED FOR UNKNOWN INDICATION
     Route: 065
  2. LEFLUNOMIDE. [Suspect]
     Active Substance: LEFLUNOMIDE
     Indication: PRODUCT USED FOR UNKNOWN INDICATION
     Route: 065
  3. CIMZIA [Suspect]
     Active Substance: CERTOLIZUMAB PEGOL
     Indication: RHEUMATOID ARTHRITIS
     Route: 058
  4. ORENCIA [Suspect]
     Active Substance: ABATACEPT
     Indication: PRODUCT USED FOR UNKNOWN INDICATION
     Route: 065
  5. ACETAMINOPHEN. [Suspect]
     Active Substance: ACETAMINOPHEN
     Indication: PRODUCT USED FOR UNKNOWN INDICATION
     Route: 065
  6. SULFAMETHOXAZOLE W/TRIMETHOPRIM [Suspect]
     Active Substance: SULFAMETHOXAZOLE\TRIMETHOPRIM
     Indication: PRODUCT USED FOR UNKNOWN INDICATION
     Route: 065
  7. REACTINE [Concomitant]
  8. ACTEMRA [Suspect]
     Active Substance: TOCILIZUMAB
     Indication: PRODUCT USED FOR UNKNOWN INDICATION
     Route: 065
  9. ENBREL [Suspect]
     Active Substance: ETANERCEPT
     Indication: RHEUMATOID ARTHRITIS
     Route: 065
  10. SIMPONI [Suspect]
     Active Substance: GOLIMUMAB
     Indication: PRODUCT USED FOR UNKNOWN INDICATION
     Route: 065
  11. PANTOPRAZOLE SODIUM. [Concomitant]
     Active Substance: PANTOPRAZOLE SODIUM
  12. VITAMIN D3 [Concomitant]
     Active Substance: CHOLECALCIFEROL
  13. PANTOLOC [Concomitant]
     Active Substance: PANTOPRAZOLE SODIUM
  14. D-ALPHA TOCOPHEROL [Concomitant]
     Active Substance: .ALPHA.-TOCOPHEROL, D-
  15. ALFACALCIDOL [Concomitant]
     Active Substance: ALFACALCIDOL
  16. METHOTREXATE. [Suspect]
     Active Substance: METHOTREXATE
     Indication: PRODUCT USED FOR UNKNOWN INDICATION
     Route: 065
  17. ARAVA [Suspect]
     Active Substance: LEFLUNOMIDE
     Indication: PRODUCT USED FOR UNKNOWN INDICATION
     Route: 065
  18. LEFLUNOMIDE. [Suspect]
     Active Substance: LEFLUNOMIDE
  19. TYLENOL [Concomitant]
     Active Substance: ACETAMINOPHEN
  20. ERGOCALCIFEROL. [Concomitant]
     Active Substance: ERGOCALCIFEROL
     Route: 065
  21. CIMZIA [Suspect]
     Active Substance: CERTOLIZUMAB PEGOL
     Route: 058
  22. CIMZIA [Suspect]
     Active Substance: CERTOLIZUMAB PEGOL
     Route: 058
  23. SIMPONI [Suspect]
     Active Substance: GOLIMUMAB
     Route: 058
  24. HYDROXYCHLOROQUINE [Concomitant]
     Active Substance: HYDROXYCHLOROQUINE
  25. PREDNISONE. [Concomitant]
     Active Substance: PREDNISONE
  26. VITAMIN C [Concomitant]
     Active Substance: ASCORBIC ACID
  27. DESOGESTREL/ETHINYL ESTRADIOL TABLETS 28 [Concomitant]
  28. CIMZIA [Suspect]
     Active Substance: CERTOLIZUMAB PEGOL
     Route: 058
  29. PERIOGARD ALCOHOL FREE [Suspect]
     Active Substance: CHLORHEXIDINE GLUCONATE
     Dosage: SOLUTION BUCCAL
     Route: 002
  30. VENTOLIN [Concomitant]
     Active Substance: ALBUTEROL SULFATE
  31. ARAVA [Concomitant]
     Active Substance: LEFLUNOMIDE
  32. PLAQUENIL SULFATE [Concomitant]
     Active Substance: HYDROXYCHLOROQUINE SULFATE
  33. SULFAMETHOXAZOLE AND TRIMETHOPRIM [Concomitant]
     Active Substance: SULFAMETHOXAZOLE\TRIMETHOPRIM
  34. OXYCODONE TEREPHTHALATE [Suspect]
     Active Substance: OXYCODONE TEREPHTHALATE
     Route: 065
  35. ENBREL [Suspect]
     Active Substance: ETANERCEPT
     Route: 058
  36. PERIOGARD ALCOHOL FREE [Suspect]
     Active Substance: CHLORHEXIDINE GLUCONATE
     Indication: PRODUCT USED FOR UNKNOWN INDICATION
     Route: 065
  37. CHLORHEXIDINE [Suspect]
     Active Substance: CHLORHEXIDINE
     Indication: PRODUCT USED FOR UNKNOWN INDICATION
     Route: 065
  38. IBUPROFEN. [Concomitant]
     Active Substance: IBUPROFEN
  39. ZOPICLONE [Concomitant]
     Active Substance: ZOPICLONE
  40. FISH OIL [Concomitant]
     Active Substance: FISH OIL
  41. CAMELLIA SINENSIS [Concomitant]
     Active Substance: TEA LEAF
  42. CHOLECALCIFEROL [Concomitant]
     Active Substance: CHOLECALCIFEROL
  43. COENZYME Q10 [Concomitant]
     Active Substance: UBIDECARENONE

REACTIONS (21)
  - Body temperature increased [Unknown]
  - Insomnia [Unknown]
  - Asthenia [Unknown]
  - Contraindicated product administered [Unknown]
  - Abdominal pain upper [Unknown]
  - Muscle spasticity [Unknown]
  - Pruritus [Unknown]
  - Sinusitis [Unknown]
  - Ear pain [Unknown]
  - Night sweats [Unknown]
  - Urticaria [Unknown]
  - Diarrhoea [Unknown]
  - Headache [Unknown]
  - Lower respiratory tract infection [Unknown]
  - Pain [Unknown]
  - Peripheral swelling [Unknown]
  - Respiratory disorder [Unknown]
  - Vomiting [Unknown]
  - Back pain [Unknown]
  - Joint swelling [Unknown]
  - Rash [Unknown]
